FAERS Safety Report 5413423-9 (Version None)
Quarter: 2007Q3

REPORT INFORMATION
  Report Type: 
  Country: None (occurrence: None)
  Receive Date: 20070810
  Receipt Date: 20070810
  Transmission Date: 20080115
  Serious: Yes (Other)
  Sender: FDA-Public Use
  Company Number: None

PATIENT
  Age: 53 Year
  Sex: Male
  Weight: 106.5953 kg

DRUGS (3)
  1. TIMOLOL MALEATE [Suspect]
     Indication: ARTHRALGIA
     Dosage: 5 MG 1 TAB TWICE DAILY PO
     Route: 048
     Dates: start: 19850101, end: 20070809
  2. TIMOLOL MALEATE [Suspect]
     Indication: VENTRICULAR EXTRASYSTOLES
     Dosage: 5 MG 1 TAB TWICE DAILY PO
     Route: 048
     Dates: start: 19850101, end: 20070809
  3. NAPROXEN SODIUM [Suspect]
     Indication: PELVIC PAIN
     Dosage: 220 MG 1 TAB TWICE DAILY PO
     Route: 048
     Dates: start: 20070601, end: 20070809

REACTIONS (2)
  - DRUG INTERACTION [None]
  - ERECTILE DYSFUNCTION [None]
